FAERS Safety Report 23150921 (Version 1)
Quarter: 2023Q4

REPORT INFORMATION
  Report Type: Report from Study
  Country: US (occurrence: US)
  Receive Date: 20231106
  Receipt Date: 20231106
  Transmission Date: 20240110
  Serious: No
  Sender: FDA-Public Use
  Company Number: US-LUNDBECK-DKLU3067998

PATIENT
  Age: 73 Year
  Sex: Male

DRUGS (3)
  1. VYEPTI [Suspect]
     Active Substance: EPTINEZUMAB-JJMR
     Indication: Migraine
     Route: 041
     Dates: start: 20230913
  2. CORTISOL [Suspect]
     Active Substance: HYDROCORTISONE
     Indication: Arthropathy
     Route: 065
     Dates: start: 20230912, end: 20230912
  3. NURTEC ODT [Concomitant]
     Active Substance: RIMEGEPANT SULFATE
     Indication: Product used for unknown indication
     Route: 065

REACTIONS (3)
  - Parosmia [Unknown]
  - Sinus disorder [Unknown]
  - Drug effect less than expected [Unknown]
